FAERS Safety Report 7923466-9 (Version None)
Quarter: 2011Q4

REPORT INFORMATION
  Report Type: 
  Country: None (occurrence: None)
  Receive Date: 20111117
  Receipt Date: 20110203
  Transmission Date: 20120403
  Serious: No
  Sender: FDA-Public Use
  Company Number: US-AMGEN-USASP2011004623

PATIENT
  Age: 23 Year
  Sex: Female

DRUGS (1)
  1. ENBREL [Suspect]
     Indication: PSORIASIS
     Dates: start: 20110105

REACTIONS (8)
  - PRURITUS [None]
  - INJECTION SITE ERYTHEMA [None]
  - ERYTHEMA [None]
  - INJECTION SITE HAEMATOMA [None]
  - INJECTION SITE INDURATION [None]
  - URTICARIA [None]
  - INJECTION SITE REACTION [None]
  - INJECTION SITE PRURITUS [None]
